FAERS Safety Report 7431063-7 (Version None)
Quarter: 2011Q2

REPORT INFORMATION
  Report Type: 
  Country: None (occurrence: None)
  Receive Date: 20110421
  Receipt Date: 20110411
  Transmission Date: 20111010
  Serious: Yes (Hospitalization)
  Sender: FDA-Public Use
  Company Number: US-ELI_LILLY_AND_COMPANY-US201005003674

PATIENT
  Sex: Female

DRUGS (1)
  1. FORTEO [Suspect]
     Dosage: 20 UG, QD
     Route: 065
     Dates: start: 20100501

REACTIONS (6)
  - EMPHYSEMA [None]
  - LUNG INFECTION [None]
  - HYPERSENSITIVITY [None]
  - SINUSITIS [None]
  - ASTHENIA [None]
  - DYSPNOEA [None]
